FAERS Safety Report 8974228 (Version 1)
Quarter: 2012Q4

REPORT INFORMATION
  Report Type: Spontaneous
  Country: US (occurrence: None)
  Receive Date: 20121217
  Receipt Date: 20121217
  Transmission Date: 20130627
  Serious: Yes (Other)
  Sender: FDA-Public Use
  Company Number: None

PATIENT
  Age: 71 Year
  Sex: Female
  Weight: 55.34 kg

DRUGS (1)
  1. CEFUROXIME AXETIL [Suspect]
     Indication: RESPIRATORY INFECTION
     Route: 048
     Dates: start: 20121128

REACTIONS (10)
  - Vomiting projectile [None]
  - Dehydration [None]
  - Fall [None]
  - Headache [None]
  - Pain in jaw [None]
  - Abdominal pain upper [None]
  - Abdominal discomfort [None]
  - Vision blurred [None]
  - Asthenia [None]
  - Pyrexia [None]
